FAERS Safety Report 15084881 (Version 1)
Quarter: 2018Q2

REPORT INFORMATION
  Report Type: Spontaneous
  Country: JP (occurrence: JP)
  Receive Date: 20180628
  Receipt Date: 20180628
  Transmission Date: 20180711
  Serious: Yes (Other)
  Sender: FDA-Public Use
  Company Number: JP-ELI_LILLY_AND_COMPANY-JP201806012746

PATIENT
  Age: 85 Year
  Sex: Female

DRUGS (2)
  1. ERBITUX [Suspect]
     Active Substance: CETUXIMAB
     Indication: HEAD AND NECK CANCER
     Dosage: UNK UNK, UNKNOWN
     Route: 041
     Dates: start: 20160202
  2. HEPARINOIDE [Concomitant]
     Indication: PROPHYLAXIS
     Dosage: UNK

REACTIONS (11)
  - Stomatitis [Recovering/Resolving]
  - Hyperkalaemia [Not Recovered/Not Resolved]
  - Pharyngeal inflammation [Recovering/Resolving]
  - Paronychia [Recovering/Resolving]
  - Dysphagia [Recovering/Resolving]
  - Dermatitis acneiform [Recovering/Resolving]
  - White blood cell count decreased [Recovered/Resolved]
  - Anaemia [Not Recovered/Not Resolved]
  - Dry skin [Recovering/Resolving]
  - Dry mouth [Recovering/Resolving]
  - Radiation skin injury [Recovering/Resolving]

NARRATIVE: CASE EVENT DATE: 20160215
